FAERS Safety Report 14020230 (Version 1)
Quarter: 2017Q3

REPORT INFORMATION
  Report Type: Spontaneous
  Country: US (occurrence: US)
  Receive Date: 20170928
  Receipt Date: 20170928
  Transmission Date: 20171128
  Serious: No
  Sender: FDA-Public Use
  Company Number: US-BAYER-2017-173716

PATIENT
  Age: 73 Year
  Sex: Female

DRUGS (1)
  1. CLIMARA [Suspect]
     Active Substance: ESTRADIOL
     Route: 062

REACTIONS (3)
  - Hot flush [Unknown]
  - Feeling abnormal [Unknown]
  - Migraine [Unknown]
